FAERS Safety Report 19231238 (Version 1)
Quarter: 2021Q2

REPORT INFORMATION
  Report Type: Report from Study
  Country: US (occurrence: US)
  Receive Date: 20210507
  Receipt Date: 20210507
  Transmission Date: 20210717
  Serious: No
  Sender: FDA-Public Use
  Company Number: NVSC2021US099509

PATIENT
  Sex: Female

DRUGS (1)
  1. COSENTYX [Suspect]
     Active Substance: SECUKINUMAB
     Indication: PSORIATIC ARTHROPATHY
     Dosage: 300 MG, QMO
     Route: 058

REACTIONS (9)
  - Stress [Unknown]
  - Insomnia [Unknown]
  - Contusion [Unknown]
  - Condition aggravated [Unknown]
  - Headache [Unknown]
  - Fall [Unknown]
  - Blood pressure increased [Unknown]
  - Gait disturbance [Unknown]
  - Pain in extremity [Unknown]
